FAERS Safety Report 5054599-5 (Version None)
Quarter: 2006Q2

REPORT INFORMATION
  Report Type: 
  Country: None (occurrence: None)
  Receive Date: 20060616
  Receipt Date: 20060309
  Transmission Date: 20061013
  Serious: No
  Sender: FDA-Public Use
  Company Number: 2006US000539

PATIENT
  Age: 84 Year
  Sex: Female

DRUGS (9)
  1. VESICARE [Suspect]
     Indication: POLLAKIURIA
     Dosage: 5 MG, ORAL
     Route: 048
     Dates: start: 20051201
  2. METOPROLOL (METOPROLOL) [Concomitant]
  3. DIOVAN [Concomitant]
  4. LOVASTIN (LOVASTATIN) [Concomitant]
  5. TEMAZEPAM [Concomitant]
  6. MULTIVITAMIN [Concomitant]
  7. GLUCOSAMINE (GLUCOSAMINE) [Concomitant]
  8. ASPIRIN [Concomitant]
  9. VITAMIN B-12 [Concomitant]

REACTIONS (1)
  - DRUG INEFFECTIVE [None]
